FAERS Safety Report 5146469-9 (Version None)
Quarter: 2006Q4

REPORT INFORMATION
  Report Type: 
  Country: None (occurrence: None)
  Receive Date: 20061102
  Receipt Date: 20061017
  Transmission Date: 20070319
  Serious: Yes (Other)
  Sender: FDA-Public Use
  Company Number: GXKR2006US06514

PATIENT
  Age: 35 Year
  Sex: Female

DRUGS (5)
  1. FLUOXETINE [Suspect]
     Indication: DEPRESSION
     Dosage: 20 MG/DAY
  2. PAROXETINE HCL [Suspect]
     Indication: DEPRESSION
  3. SERTRALINE [Suspect]
     Indication: DEPRESSION
     Dosage: THECAL
  4. CITALOPRAM (NGX) (CITALOPRAM) [Suspect]
     Indication: DEPRESSION
  5. VENLAFAXINE (NGX) (VENLAFAXINE) [Suspect]
     Indication: DEPRESSION

REACTIONS (2)
  - BLOOD FOLLICLE STIMULATING HORMONE INCREASED [None]
  - NIGHT SWEATS [None]
